FAERS Safety Report 17941361 (Version 2)
Quarter: 2020Q3

REPORT INFORMATION
  Report Type: Report from Study
  Country: US (occurrence: US)
  Receive Date: 20200624
  Receipt Date: 20200701
  Transmission Date: 20201103
  Serious: Yes (Hospitalization)
  Sender: FDA-Public Use
  Company Number: US-ACTELION-A-NJ2018-168120

PATIENT
  Age: 46 Year
  Sex: Male
  Weight: 87.98 kg

DRUGS (17)
  1. TADALAFIL. [Concomitant]
     Active Substance: TADALAFIL
     Dosage: 20 MG
  2. NEURONTIN [Concomitant]
     Active Substance: GABAPENTIN
     Dosage: 100 MG
  3. GLUCOPHAGE [Concomitant]
     Active Substance: METFORMIN HYDROCHLORIDE
     Dosage: 500 MG
  4. UPTRAVI [Suspect]
     Active Substance: SELEXIPAG
     Dosage: 1200 MCG, BID
     Route: 048
  5. CETIRIZINE [Concomitant]
     Active Substance: CETIRIZINE HYDROCHLORIDE
     Dosage: 10 MG
  6. DAPAGLIFLOZIN. [Concomitant]
     Active Substance: DAPAGLIFLOZIN
  7. LASIX [Concomitant]
     Active Substance: FUROSEMIDE
     Dosage: 40 MG
  8. UPTRAVI [Suspect]
     Active Substance: SELEXIPAG
     Dosage: 200 MCG, BID
     Route: 048
  9. OPSUMIT [Suspect]
     Active Substance: MACITENTAN
     Indication: PULMONARY ARTERIAL HYPERTENSION
     Dosage: 10 MG, QD
     Route: 048
     Dates: start: 20140606
  10. UPTRAVI [Suspect]
     Active Substance: SELEXIPAG
     Dosage: 800 MCG, BID
     Route: 048
  11. DIGOXIN. [Concomitant]
     Active Substance: DIGOXIN
     Dosage: 125 MCG
  12. UPTRAVI [Suspect]
     Active Substance: SELEXIPAG
     Dosage: 1000 MCG, BID
     Route: 048
  13. POTASSIUM CHLORIDE. [Concomitant]
     Active Substance: POTASSIUM CHLORIDE
  14. ALDACTONE [Concomitant]
     Active Substance: SPIRONOLACTONE
  15. UPTRAVI [Suspect]
     Active Substance: SELEXIPAG
     Indication: PULMONARY ARTERIAL HYPERTENSION
     Dosage: 1600 MCG, BID
     Route: 048
     Dates: end: 202006
  16. MAGNESIUM OXIDE. [Concomitant]
     Active Substance: MAGNESIUM OXIDE
     Dosage: 400 MG
  17. REMODULIN [Concomitant]
     Active Substance: TREPROSTINIL

REACTIONS (16)
  - Pulmonary arterial hypertension [Unknown]
  - Unevaluable event [Unknown]
  - Dyspnoea [Unknown]
  - Drug ineffective [Unknown]
  - Syncope [Unknown]
  - Malaise [Unknown]
  - Toothache [Unknown]
  - Dizziness [Unknown]
  - Disease progression [Unknown]
  - Therapy change [Recovered/Resolved]
  - Inappropriate schedule of product administration [Unknown]
  - Arthralgia [Unknown]
  - Headache [Unknown]
  - Dysgeusia [Unknown]
  - Pain in jaw [Unknown]
  - Tooth infection [Unknown]

NARRATIVE: CASE EVENT DATE: 20200608
